FAERS Safety Report 16217246 (Version 5)
Quarter: 2020Q1

REPORT INFORMATION
  Report Type: Spontaneous
  Country: US (occurrence: US)
  Receive Date: 20190419
  Receipt Date: 20200206
  Transmission Date: 20200409
  Serious: Yes (Other)
  Sender: FDA-Public Use
  Company Number: US-PFIZER INC-2019161675

PATIENT
  Age: 38 Year
  Sex: Male

DRUGS (33)
  1. ACETAMINOPHEN. [Concomitant]
     Active Substance: ACETAMINOPHEN
     Dosage: 500 MG, AS NEEDED
  2. CALCIUM CITRATE [Concomitant]
     Active Substance: CALCIUM CITRATE
     Dosage: 1TSP, 2X/DAY (BID AM/PM)
     Dates: start: 20000706
  3. GENOTROPIN [Suspect]
     Active Substance: SOMATROPIN
     Indication: OSTEOPOROSIS
     Dosage: 1.2 MG, UNK
  4. PERIDEX [CHLORHEXIDINE GLUCONATE] [Concomitant]
     Dosage: ORAL RINSE APPLIED TO GUMS W/TOOTHBRUSH, 1X/DAY (QD AM)
     Route: 048
     Dates: start: 20160609
  5. PROLIA [Concomitant]
     Active Substance: DENOSUMAB
     Dosage: 60 MG, 6 MONTH INTERVAL
     Route: 058
     Dates: start: 20181112
  6. SENOKOT-S [Concomitant]
     Active Substance: DOCUSATE SODIUM\SENNOSIDES
     Dosage: UNK, AS NEEDED (50 MG/8.6 MG)
  7. CINNAMON [CINNAMOMUM VERUM] [Concomitant]
     Dosage: 500 MG, 2X/DAY (1 CAP BID AM/PM)
     Dates: start: 20090101
  8. GENOTROPIN [Suspect]
     Active Substance: SOMATROPIN
     Indication: GROWTH HORMONE DEFICIENCY
     Dosage: 0.4 MG, 1X/DAY (QD PM)
     Route: 058
     Dates: start: 20010213
  9. PEPCID AC [Concomitant]
     Active Substance: FAMOTIDINE
     Dosage: 20 MG, AS NEEDED
  10. NASACORT [Concomitant]
     Active Substance: TRIAMCINOLONE ACETONIDE
     Dosage: UNK, AS NEEDED
  11. GENOTROPIN [Suspect]
     Active Substance: SOMATROPIN
     Dosage: 0.4 MG, 1X/DAY
     Dates: start: 20160811
  12. PROZAC [Concomitant]
     Active Substance: FLUOXETINE HYDROCHLORIDE
     Indication: ANXIETY
     Dosage: 20 MG, 1X/DAY (QD AM)
     Route: 048
     Dates: start: 20150304
  13. IBUPROFEN SODIUM. [Concomitant]
     Active Substance: IBUPROFEN SODIUM
     Dosage: 200 MG, AS NEEDED
  14. CRANBERRY. [Concomitant]
     Active Substance: CRANBERRY
     Dosage: 400 MG, 1X/DAY (1 CAP QD AM)
     Dates: start: 20080513
  15. BENZOYL PEROXIDE. [Concomitant]
     Active Substance: BENZOYL PEROXIDE
     Dosage: THIN COAT, 1X/DAY (QD PM)
     Route: 048
     Dates: start: 19991001
  16. DIPHENHYDRAMINE HCL [Concomitant]
     Active Substance: DIPHENHYDRAMINE HYDROCHLORIDE
     Dosage: 25 MG, AS NEEDED
  17. VITAMIN C [Concomitant]
     Active Substance: ASCORBIC ACID
     Dosage: 1/2 ROUNDED TSP, 1X/DAY (QD AM)
     Route: 048
     Dates: start: 20090101
  18. MIRALAX [Concomitant]
     Active Substance: POLYETHYLENE GLYCOL 3350
     Dosage: 1/2 CAP (8-1/2 G), 1X/DAY (QD AM)
     Dates: start: 20190415
  19. SALINE [SODIUM CHLORIDE] [Concomitant]
     Active Substance: SODIUM CHLORIDE
     Dosage: UNK, AS NEEDED
  20. DELSYM 12 HOUR COUGH SUPPRESSANT [Concomitant]
     Dosage: UNK, AS NEEDED
  21. GARLIC [ALLIUM SATIVUM] [Concomitant]
     Active Substance: GARLIC
     Dosage: 500 MG, 2X/DAY (1 TAB BID AM/PM)
     Dates: start: 20080901
  22. KRILL OIL [Concomitant]
     Active Substance: DIETARY SUPPLEMENT\KRILL OIL
     Dosage: 1000 MG, 1X/DAY (2 CAP QD AM)
     Dates: start: 20031001
  23. PROBIOTIC BLEND [Concomitant]
     Dosage: 1 DF, 1X/DAY (25 BILLION CFU, 1 CAP QD LUNCH)
     Dates: start: 20180409
  24. HERPECIN-L [ALLANTOIN;PADIMATE O;PYRIDOXINE HYDROCHLORIDE;TITANIUM DIO [Concomitant]
     Dosage: UNK, AS NEEDED
  25. TERBINAFINE HYDROCHLORIDE. [Concomitant]
     Active Substance: TERBINAFINE HYDROCHLORIDE
     Dosage: UNK, AS NEEDED
  26. TRIPLE ANTIBIOTIC [BACITRACIN ZINC;GRAMICIDIN;POLYMYXIN B SULFATE] [Concomitant]
     Dosage: UNK, AS NEEDED
  27. DIGESTIVE ENZYME [Concomitant]
     Active Substance: UNSPECIFIED INGREDIENT
     Dosage: 1 DF, 2X/DAY (1 CAP BID LUNCH/DINNER)
     Dates: start: 20181016
  28. VITAMIN D 2000 [Concomitant]
     Active Substance: VITAMIN D NOS
     Dosage: 2000 IU, 1X/DAY (1 CAP QD AM)
     Dates: start: 200911
  29. SECURA EXTRA PROTECTIVE CREAM [Concomitant]
     Active Substance: ZINC OXIDE
     Dosage: HEAVY COAT, 2X/DAY (BID AM/PM)
     Route: 061
     Dates: start: 19991001
  30. LUBRIDERM [PARAFFIN] [Concomitant]
     Dosage: COAT HANDS, 2X/DAY (BID AM/PM)
     Dates: start: 19991001
  31. CAMPHO-PHENIQUE [Concomitant]
     Active Substance: CAMPHOR\PHENOL
     Dosage: UNK, AS NEEDED
  32. PHENYLEPHRINE HCL [Concomitant]
     Active Substance: PHENYLEPHRINE HYDROCHLORIDE
     Dosage: 10 MG, AS NEEDED
  33. OPCON-A [Concomitant]
     Active Substance: NAPHAZOLINE HYDROCHLORIDE\PHENIRAMINE MALEATE
     Dosage: UNK, AS NEEDED

REACTIONS (9)
  - Poor quality device used [Unknown]
  - Fatigue [Unknown]
  - Confusional state [Unknown]
  - Product use issue [Unknown]
  - Sensitivity to weather change [Unknown]
  - Stress [Unknown]
  - Fear [Unknown]
  - Autoimmune disorder [Unknown]
  - Device breakage [Unknown]
